FAERS Safety Report 6838416-6 (Version None)
Quarter: 2010Q3

REPORT INFORMATION
  Report Type: 
  Country: None (occurrence: None)
  Receive Date: 20100713
  Receipt Date: 20070613
  Transmission Date: 20110219
  Serious: No
  Sender: FDA-Public Use
  Company Number: US-PFIZER INC-2007047738

PATIENT
  Sex: Female
  Weight: 53.181 kg

DRUGS (2)
  1. CHANTIX [Suspect]
     Indication: SMOKING CESSATION THERAPY
     Dates: start: 20070601
  2. ORAL CONTRACEPTIVE NOS [Concomitant]

REACTIONS (3)
  - IRRITABILITY [None]
  - NAUSEA [None]
  - NERVOUSNESS [None]
